FAERS Safety Report 5455727-X (Version None)
Quarter: 2007Q3

REPORT INFORMATION
  Report Type: 
  Country: None (occurrence: None)
  Receive Date: 20070918
  Receipt Date: 20070911
  Transmission Date: 20080115
  Serious: Yes (Hospitalization)
  Sender: FDA-Public Use
  Company Number: US-SP-2007-03058

PATIENT
  Age: 36 Year
  Sex: Female

DRUGS (8)
  1. TUBERSOL [Suspect]
     Indication: TUBERCULIN TEST
     Route: 023
     Dates: start: 20070730
  2. IBUPROFEN [Concomitant]
  3. ALBUTEROL [Concomitant]
  4. METHADONE HCL [Concomitant]
  5. TYLENOL (CAPLET) [Concomitant]
  6. SCOPOLAMINE PATCH [Concomitant]
  7. ZYRTEC [Concomitant]
  8. AMITRIPTYLINE HCL [Concomitant]

REACTIONS (4)
  - HEADACHE [None]
  - NAUSEA [None]
  - PYREXIA [None]
  - VOMITING [None]
